FAERS Safety Report 7743095-X (Version None)
Quarter: 2011Q3

REPORT INFORMATION
  Report Type: 
  Country: None (occurrence: None)
  Receive Date: 20110912
  Receipt Date: 20110901
  Transmission Date: 20111222
  Serious: Yes (Other)
  Sender: FDA-Public Use
  Company Number: US-ASTRAZENECA-2011SE52637

PATIENT
  Age: 50 Year
  Sex: Female
  Weight: 81.6 kg

DRUGS (5)
  1. CRESTOR [Suspect]
     Indication: HYPERCHOLESTEROLAEMIA
     Route: 048
     Dates: start: 20110801
  2. METOPROLOL SUCCINATE [Concomitant]
     Indication: HYPERTENSION
  3. MORPINE PUMP [Concomitant]
     Indication: PAIN
  4. ASPIRIN [Concomitant]
     Indication: HEADACHE
  5. IBUPROFEN [Concomitant]
     Indication: PAIN

REACTIONS (6)
  - INAPPROPRIATE SCHEDULE OF DRUG ADMINISTRATION [None]
  - LIPIDS DECREASED [None]
  - MYOCARDIAL INFARCTION [None]
  - STAPHYLOCOCCAL INFECTION [None]
  - BLOOD CHOLESTEROL INCREASED [None]
  - DRUG INEFFECTIVE [None]
